FAERS Safety Report 4935399-0 (Version None)
Quarter: 2006Q1

REPORT INFORMATION
  Report Type: 
  Country: None (occurrence: None)
  Receive Date: 20060127
  Receipt Date: 20051104
  Transmission Date: 20060701
  Serious: Yes (Other)
  Sender: FDA-Public Use
  Company Number: 2005152641

PATIENT

DRUGS (2)
  1. LYRICA [Suspect]
     Indication: CONVULSION
     Dosage: 150 MG (75 MG, 2 IN 1 D)
  2. TEGRETOL [Concomitant]

REACTIONS (1)
  - DIZZINESS [None]
